FAERS Safety Report 6164425-9 (Version None)
Quarter: 2009Q2

REPORT INFORMATION
  Report Type: 
  Country: None (occurrence: None)
  Receive Date: 20090421
  Receipt Date: 20090408
  Transmission Date: 20091009
  Serious: Yes (Death)
  Sender: FDA-Public Use
  Company Number: AE-2009-002

PATIENT
  Age: 49 Year
  Sex: Female

DRUGS (8)
  1. METFORMIN HCL [Suspect]
     Indication: DIABETES MELLITUS
     Dosage: 2G, ORAL
     Route: 048
  2. AMISULPRIDE [Suspect]
     Dosage: 500MG, BID, ORAL
     Route: 048
  3. DIAZEPAM [Concomitant]
  4. HYDROCORTISONE [Concomitant]
  5. QUETIAPINE FUMARATE [Concomitant]
  6. INSULIN (INSULIN SOURCE UNSPECIFIED) [Concomitant]
  7. MOVICOL (MACROGOL 3350, POLYTHYLENE GLYCOL 3350, POTASSIUM CHLORIDE) [Concomitant]
  8. SENNA [Concomitant]

REACTIONS (2)
  - ANTIPSYCHOTIC DRUG LEVEL INCREASED [None]
  - SUDDEN DEATH [None]
